FAERS Safety Report 4709999-7 (Version None)
Quarter: 2005Q3

REPORT INFORMATION
  Report Type: 
  Country: None (occurrence: None)
  Receive Date: 20050708
  Receipt Date: 20050607
  Transmission Date: 20060218
  Serious: Yes (Hospitalization, Disabling)
  Sender: FDA-Public Use
  Company Number: 200511495EU

PATIENT
  Age: 19 Year
  Sex: Male

DRUGS (15)
  1. LANTUS [Suspect]
     Indication: DIABETES MELLITUS NON-INSULIN-DEPENDENT
     Route: 058
     Dates: start: 20050201
  2. INSULIN INSULATARD NPH NORDISK [Concomitant]
     Indication: DIABETES MELLITUS NON-INSULIN-DEPENDENT
  3. HUMALOG [Concomitant]
     Indication: DIABETES MELLITUS NON-INSULIN-DEPENDENT
     Dosage: DOSE: 10-15; FREQUENCY: BEFORE MEALS; DOSE UNIT: UNITS
     Route: 058
  4. INSULIN PUMP [Concomitant]
     Indication: DIABETES MELLITUS NON-INSULIN-DEPENDENT
  5. LYRICA [Concomitant]
  6. ACETAMINOPHEN [Concomitant]
  7. PARALGIN FORTE [Concomitant]
     Dosage: DOSE: 400/300
  8. SAROTEX [Concomitant]
     Dates: start: 20050509
  9. VALLERGAN [Concomitant]
  10. FRAGMIN [Concomitant]
  11. ZANTAC [Concomitant]
  12. ABBOTICIN [Concomitant]
  13. LACTULOSE [Concomitant]
  14. TOILAX [Concomitant]
  15. NACL [Concomitant]
     Route: 054

REACTIONS (11)
  - AUTOIMMUNE DISORDER [None]
  - AUTONOMIC NEUROPATHY [None]
  - BLADDER DISORDER [None]
  - CONSTIPATION [None]
  - DEMYELINATING POLYNEUROPATHY [None]
  - ERECTILE DYSFUNCTION [None]
  - FUNGAL INFECTION [None]
  - POLYNEUROPATHY [None]
  - RASH [None]
  - UROGENITAL DISORDER [None]
  - WEIGHT INCREASED [None]
